FAERS Safety Report 4352272-X (Version None)
Quarter: 2004Q2

REPORT INFORMATION
  Report Type: 
  Country: None (occurrence: None)
  Receive Date: 20040416
  Receipt Date: 20001218
  Transmission Date: 20050107
  Serious: Yes (Other)
  Sender: FDA-Public Use
  Company Number: 200090244BWH

PATIENT
  Age: 46 Year
  Sex: Female

DRUGS (7)
  1. AVELOX [Suspect]
     Indication: BRONCHITIS
     Dosage: 400 MG, TOTAL DAILY,ORAL
     Route: 048
     Dates: start: 20001121, end: 20001127
  2. PREDNISONE [Concomitant]
  3. DIFLUCAN [Concomitant]
  4. HYDROCHLOROTHIAZIDE [Concomitant]
  5. CALAN [Concomitant]
  6. ALBUTEROL [Concomitant]
  7. ATROVENT [Concomitant]

REACTIONS (1)
  - LIVER FUNCTION TEST ABNORMAL [None]
